FAERS Safety Report 24141620 (Version 3)
Quarter: 2024Q4

REPORT INFORMATION
  Report Type: Spontaneous
  Country: US (occurrence: US)
  Receive Date: 20240726
  Receipt Date: 20241014
  Transmission Date: 20250114
  Serious: No
  Sender: BIOVITRUM
  Company Number: US-BIOVITRUM-2024-US-010260

PATIENT
  Age: 82 Year
  Sex: Male

DRUGS (4)
  1. VONJO [Suspect]
     Active Substance: PACRITINIB
     Indication: Myelodysplastic syndrome unclassifiable
     Dosage: TWICE DAILY
     Route: 048
     Dates: start: 20230301
  2. VONJO [Suspect]
     Active Substance: PACRITINIB
     Dosage: TWICE DAILY
     Route: 048
     Dates: start: 20230301
  3. VONJO [Suspect]
     Active Substance: PACRITINIB
     Dosage: TAKE 2 CAPSULES TWICE DAILY
     Route: 048
     Dates: start: 20230301
  4. PENICILLIN [Suspect]
     Active Substance: PENICILLIN
     Indication: Product used for unknown indication

REACTIONS (3)
  - Diarrhoea [Unknown]
  - Drug hypersensitivity [Unknown]
  - Nasopharyngitis [Unknown]
